FAERS Safety Report 24449719 (Version 1)
Quarter: 2024Q4

REPORT INFORMATION
  Report Type: Spontaneous
  Country: US (occurrence: US)
  Receive Date: 20241017
  Receipt Date: 20241017
  Transmission Date: 20250115
  Serious: Yes (Hospitalization)
  Sender: MYLAN
  Company Number: US-MYLANLABS-2024M1092672

PATIENT
  Sex: Female

DRUGS (2)
  1. ALPROSTADIL [Suspect]
     Active Substance: ALPROSTADIL
     Indication: Heart disease congenital
     Dosage: 0.1 MICROGRAM/KILOGRAM, QMINUTE
     Route: 065
  2. ALPROSTADIL [Suspect]
     Active Substance: ALPROSTADIL
     Dosage: 0.03 MICROGRAM/KILOGRAM, QMINUTE
     Route: 065

REACTIONS (2)
  - Rash [Recovered/Resolved]
  - Off label use [Unknown]
